FAERS Safety Report 5000046-9 (Version None)
Quarter: 2006Q2

REPORT INFORMATION
  Report Type: 
  Country: None (occurrence: None)
  Receive Date: 20060509
  Receipt Date: 20040712
  Transmission Date: 20061013
  Serious: Yes (Hospitalization, Other)
  Sender: FDA-Public Use
  Company Number: 1198810185

PATIENT
  Age: 53 Year
  Sex: Female

DRUGS (2)
  1. TRASYLOL [Suspect]
     Indication: PROCOAGULANT THERAPY
     Dosage: 100000 IU, TOTAL DAILY, INTRAVENOUS
     Route: 042
     Dates: start: 19880426
  2. TRASYLOL [Suspect]
     Indication: PROMOTION OF WOUND HEALING
     Dosage: 100000 IU, TOTAL DAILY, INTRAVENOUS
     Route: 042
     Dates: start: 19880426

REACTIONS (4)
  - APALLIC SYNDROME [None]
  - HYPOXIC ENCEPHALOPATHY [None]
  - SHOCK [None]
  - TACHYCARDIA [None]
